FAERS Safety Report 18129576 (Version 1)
Quarter: 2020Q3

REPORT INFORMATION
  Report Type: Spontaneous
  Country: US (occurrence: US)
  Receive Date: 20200810
  Receipt Date: 20200810
  Transmission Date: 20201103
  Serious: No
  Sender: FDA-Public Use
  Company Number: US-PERRIGO-19US008217

PATIENT
  Age: 20 Year
  Sex: Female
  Weight: 113.38 kg

DRUGS (2)
  1. LORATADINE. [Suspect]
     Active Substance: LORATADINE
     Indication: SINUSITIS
     Dosage: 10 MG, TWICE WITHIN 24 HOURS
     Route: 048
     Dates: start: 20190702, end: 20190703
  2. DECONGESTANTS AND OTHER NASAL PREPARATIONS FO [Concomitant]
     Indication: SINUSITIS
     Dosage: UNK
     Route: 045
     Dates: start: 20190703

REACTIONS (1)
  - Off label use [Recovered/Resolved]

NARRATIVE: CASE EVENT DATE: 20190702
